FAERS Safety Report 14971371 (Version 1)
Quarter: 2018Q2

REPORT INFORMATION
  Report Type: Spontaneous
  Country: US (occurrence: US)
  Receive Date: 20180604
  Receipt Date: 20180604
  Transmission Date: 20180711
  Serious: No
  Sender: FDA-Public Use
  Company Number: US-GALDERMA-US18005744

PATIENT
  Age: 19 Year
  Sex: Female

DRUGS (5)
  1. PROACTIV DEEP CLEANSING WASH [Concomitant]
     Active Substance: SALICYLIC ACID
     Indication: ERYTHEMA
     Route: 061
     Dates: start: 201710, end: 20171116
  2. PROACTIV MD BALANCING TONER [Concomitant]
     Active Substance: COSMETICS
     Indication: ERYTHEMA
     Route: 061
     Dates: start: 201710, end: 20171116
  3. PROACTIV MD DEEP CLEANSING FACE WASH [Concomitant]
     Active Substance: COSMETICS
     Indication: ERYTHEMA
     Route: 061
     Dates: start: 201710, end: 20171116
  4. PROACTIV MD ADAPALENE ACNE TREATMENT [Suspect]
     Active Substance: ADAPALENE
     Indication: ERYTHEMA
     Dosage: 0.1%
     Route: 061
     Dates: start: 201710, end: 20171116
  5. PROACTIV SOLUTION BLACKHEAD DISSOLVING [Concomitant]
     Active Substance: SALICYLIC ACID
     Indication: ERYTHEMA
     Route: 061
     Dates: start: 201710, end: 20171116

REACTIONS (3)
  - Acne [Recovered/Resolved]
  - Rash [Recovered/Resolved]
  - Product use in unapproved indication [Recovered/Resolved]

NARRATIVE: CASE EVENT DATE: 201710
